FAERS Safety Report 13551918 (Version 6)
Quarter: 2017Q3

REPORT INFORMATION
  Report Type: Spontaneous
  Country: US (occurrence: US)
  Receive Date: 20170516
  Receipt Date: 20170721
  Transmission Date: 20171127
  Serious: No
  Sender: FDA-Public Use
  Company Number: US-009507513-1705USA007848

PATIENT
  Sex: Female

DRUGS (1)
  1. ETONOGESTREL IMPLANT- UNKNOWN [Suspect]
     Active Substance: ETONOGESTREL
     Dosage: IMPLANT, UNK
     Route: 059
     Dates: start: 2010

REACTIONS (3)
  - Complication associated with device [Not Recovered/Not Resolved]
  - No adverse event [Unknown]
  - Incorrect drug administration duration [Unknown]
